FAERS Safety Report 7309288-0 (Version None)
Quarter: 2011Q1

REPORT INFORMATION
  Report Type: 
  Country: None (occurrence: None)
  Receive Date: 20110223
  Receipt Date: 20100922
  Transmission Date: 20110831
  Serious: No
  Sender: FDA-Public Use
  Company Number: US-BAUSCH-2010BL005365

PATIENT
  Age: 57 Year
  Sex: Female

DRUGS (1)
  1. DESMOPRESSIN ACETATE [Suspect]
     Indication: BLOOD SODIUM DECREASED
     Route: 045
     Dates: start: 20100922

REACTIONS (3)
  - INCREASED UPPER AIRWAY SECRETION [None]
  - CHOKING [None]
  - RETCHING [None]
